FAERS Safety Report 8107410-X (Version None)
Quarter: 2012Q1

REPORT INFORMATION
  Report Type: 
  Country: None (occurrence: None)
  Receive Date: 20120202
  Receipt Date: 20120127
  Transmission Date: 20120608
  Serious: Yes (Hospitalization, Other)
  Sender: FDA-Public Use
  Company Number: BR-ABBOTT-11P-020-0724877-00

PATIENT
  Sex: Female
  Weight: 48.4 kg

DRUGS (1)
  1. HUMIRA [Suspect]
     Indication: CROHN'S DISEASE

REACTIONS (6)
  - RECTAL HAEMORRHAGE [None]
  - OSTEOMYELITIS [None]
  - SPINAL DISORDER [None]
  - PERIARTHRITIS [None]
  - BONE DISORDER [None]
  - SEPTIC SHOCK [None]
